FAERS Safety Report 8280901 (Version 2)
Quarter: 2012Q4

REPORT INFORMATION
  Report Type: Spontaneous
  Country: US (occurrence: US)
  Receive Date: 20111208
  Receipt Date: 20121218
  Transmission Date: 20130627
  Serious: Yes (Other)
  Sender: FDA-Public Use
  Company Number: PHEH2011US010779

PATIENT
  Age: 63 Year
  Sex: Male

DRUGS (1)
  1. ZOMETA (ZOLEDRONATE) [Suspect]
     Indication: MULTIPLE MYELOMA
     Dosage: 4/5 mg/ml, QMO
     Route: 030

REACTIONS (1)
  - Osteonecrosis of jaw [Unknown]
